FAERS Safety Report 21080211 (Version 1)
Quarter: 2022Q3

REPORT INFORMATION
  Report Type: Spontaneous
  Country: US (occurrence: US)
  Receive Date: 20220714
  Receipt Date: 20220714
  Transmission Date: 20221026
  Serious: No
  Sender: FDA-Public Use
  Company Number: US-BAUSCH-BL-2022-017551

PATIENT
  Age: 67 Year
  Sex: Female

DRUGS (2)
  1. WELLBUTRIN XL [Suspect]
     Active Substance: BUPROPION HYDROCHLORIDE
     Indication: Product used for unknown indication
     Dosage: 300 DOSE
     Route: 065
  2. WELLBUTRIN XL [Suspect]
     Active Substance: BUPROPION HYDROCHLORIDE
     Dosage: 150 DOSE
     Route: 065
     Dates: start: 20220609

REACTIONS (2)
  - Clumsiness [Unknown]
  - Balance disorder [Unknown]
